FAERS Safety Report 7278416-8 (Version None)
Quarter: 2011Q1

REPORT INFORMATION
  Report Type: 
  Country: None (occurrence: None)
  Receive Date: 20110207
  Receipt Date: 20110126
  Transmission Date: 20110831
  Serious: Yes (Other)
  Sender: FDA-Public Use
  Company Number: DE-ELI_LILLY_AND_COMPANY-DE201101006611

PATIENT
  Age: 21 Year
  Sex: Male
  Weight: 76 kg

DRUGS (3)
  1. FLUOXETINE HCL [Suspect]
     Dosage: 20 MG, UNK
     Route: 048
     Dates: start: 20100602, end: 20100603
  2. FLUOXETINE HCL [Suspect]
     Dosage: 10 MG, UNK
     Route: 048
     Dates: start: 20100531, end: 20100601
  3. FLUOXETINE HCL [Suspect]
     Dosage: 30 MG, UNK
     Route: 048
     Dates: start: 20100604, end: 20100607

REACTIONS (1)
  - BLOOD CREATINE PHOSPHOKINASE INCREASED [None]
